FAERS Safety Report 17623050 (Version 3)
Quarter: 2020Q2

REPORT INFORMATION
  Report Type: Spontaneous
  Country: US (occurrence: US)
  Receive Date: 20200403
  Receipt Date: 20200508
  Transmission Date: 20200713
  Serious: No
  Sender: FDA-Public Use
  Company Number: US-VERTEX PHARMACEUTICALS-2020-007202

PATIENT
  Age: 12 Year
  Sex: Male

DRUGS (9)
  1. ALBUTEROL SULFATE. [Concomitant]
     Active Substance: ALBUTEROL SULFATE
  2. TRIKAFTA [Suspect]
     Active Substance: ELEXACAFTOR\IVACAFTOR\TEZACAFTOR
     Indication: CYSTIC FIBROSIS
     Dosage: 2 ORANGE TABLETS IN AM AND 1 BLUE TABLET IN PM
     Route: 048
     Dates: start: 20200319
  3. MIRALAX [Concomitant]
     Active Substance: POLYETHYLENE GLYCOL 3350
     Dosage: 17 G/DOSE POWDER
  4. HYPERSAL [Concomitant]
     Active Substance: SODIUM CHLORIDE
     Route: 055
  5. FLONASE ALLERGY RELIEF [Concomitant]
     Active Substance: FLUTICASONE PROPIONATE
  6. PREVACID 24 HR [Concomitant]
     Active Substance: LANSOPRAZOLE
  7. CREON [Concomitant]
     Active Substance: PANCRELIPASE AMYLASE\PANCRELIPASE LIPASE\PANCRELIPASE PROTEASE
     Dosage: 12K-38K-60 CAPSULE
  8. PULMOZYME [Concomitant]
     Active Substance: DORNASE ALFA
  9. TOBRAMYCIN [TOBRAMYCIN SULFATE] [Concomitant]
     Active Substance: TOBRAMYCIN SULFATE
     Route: 055

REACTIONS (1)
  - Infective pulmonary exacerbation of cystic fibrosis [Recovered/Resolved]

NARRATIVE: CASE EVENT DATE: 20200319
